FAERS Safety Report 13959964 (Version 1)
Quarter: 2017Q3

REPORT INFORMATION
  Report Type: Spontaneous
  Country: GR (occurrence: GR)
  Receive Date: 20170912
  Receipt Date: 20170912
  Transmission Date: 20171128
  Serious: Yes (Death)
  Sender: FDA-Public Use
  Company Number: GR-ELI_LILLY_AND_COMPANY-GR201709002406

PATIENT
  Age: 18 Year
  Sex: Male

DRUGS (1)
  1. LADOSE [Suspect]
     Active Substance: FLUOXETINE HYDROCHLORIDE
     Indication: PRODUCT USED FOR UNKNOWN INDICATION
     Dosage: UNK, UNKNOWN
     Route: 065

REACTIONS (3)
  - Myocardial infarction [Fatal]
  - Completed suicide [Fatal]
  - Intentional overdose [Unknown]

NARRATIVE: CASE EVENT DATE: 201708
